FAERS Safety Report 4985093-5 (Version None)
Quarter: 2006Q1

REPORT INFORMATION
  Report Type: 
  Country: None (occurrence: None)
  Receive Date: 20060303
  Receipt Date: 19990331
  Transmission Date: 20060701
  Serious: Yes (Hospitalization)
  Sender: FDA-Public Use
  Company Number: PHEH1999US21163

PATIENT

DRUGS (2)
  1. SANDIMMUNE [Suspect]
     Indication: RENAL TRANSPLANT
  2. CREON [Concomitant]

REACTIONS (2)
  - HEPATIC ENZYME INCREASED [None]
  - RENAL FAILURE [None]
